FAERS Safety Report 17386581 (Version 1)
Quarter: 2020Q1

REPORT INFORMATION
  Report Type: Spontaneous
  Country: RO (occurrence: RO)
  Receive Date: 20200206
  Receipt Date: 20200206
  Transmission Date: 20200409
  Serious: Yes (Other)
  Sender: FDA-Public Use
  Company Number: RO-US-PROVELL PHARMACEUTICALS LLC-E2B_90074502

PATIENT
  Sex: Female

DRUGS (1)
  1. EUTHYROX [Suspect]
     Active Substance: LEVOTHYROXINE SODIUM
     Indication: PRODUCT USED FOR UNKNOWN INDICATION
     Route: 048

REACTIONS (4)
  - Anxiety [Recovered/Resolved]
  - Eructation [Recovered/Resolved]
  - Asphyxia [Recovered/Resolved]
  - Dysphagia [Recovered/Resolved]
